FAERS Safety Report 5704623-9 (Version None)
Quarter: 2008Q2

REPORT INFORMATION
  Report Type: 
  Country: None (occurrence: None)
  Receive Date: 20080409
  Receipt Date: 20080331
  Transmission Date: 20081010
  Serious: No
  Sender: FDA-Public Use
  Company Number: 2008JP001477

PATIENT
  Age: 73 Year
  Sex: Female

DRUGS (5)
  1. VESICARE [Suspect]
     Indication: POLLAKIURIA
     Dosage: 10 MG, /D, ORAL
     Route: 048
     Dates: start: 20080218
  2. MADOPAR CR (BENSERAZIDE HYDROCHLORIDE) [Concomitant]
  3. SYMMETREL [Concomitant]
  4. BENECID (PROBENECID) [Concomitant]
  5. SELEGILINE (SELEGILINE) [Concomitant]

REACTIONS (3)
  - CONDITION AGGRAVATED [None]
  - FALL [None]
  - PARKINSON'S DISEASE [None]
